FAERS Safety Report 13353204 (Version 4)
Quarter: 2017Q2

REPORT INFORMATION
  Report Type: Spontaneous
  Country: US (occurrence: US)
  Receive Date: 20170321
  Receipt Date: 20170406
  Transmission Date: 20170830
  Serious: No
  Sender: FDA-Public Use
  Company Number: US-BIOGEN-2017BI00371611

PATIENT
  Sex: Female

DRUGS (1)
  1. PLEGRIDY [Suspect]
     Active Substance: PEGINTERFERON BETA-1A
     Indication: MULTIPLE SCLEROSIS
     Route: 065

REACTIONS (10)
  - Injection site erythema [Unknown]
  - Injection site warmth [Unknown]
  - Gait disturbance [Unknown]
  - Muscular weakness [Unknown]
  - Headache [Unknown]
  - General symptom [Unknown]
  - Feeling abnormal [Unknown]
  - Drug intolerance [Unknown]
  - Disease progression [Unknown]
  - Malaise [Unknown]
